FAERS Safety Report 10095456 (Version 1)
Quarter: 2014Q2

REPORT INFORMATION
  Report Type: Spontaneous
  Country: US (occurrence: US)
  Receive Date: 20140422
  Receipt Date: 20140422
  Transmission Date: 20141212
  Serious: No
  Sender: FDA-Public Use
  Company Number: US-009507513-1404USA009151

PATIENT
  Sex: Male

DRUGS (3)
  1. DULERA [Suspect]
     Indication: EMPHYSEMA
     Dosage: TWO INHALATIONS/ TWO TIMES PER DAY
     Route: 048
     Dates: start: 20140415
  2. SPIRIVA [Suspect]
     Dosage: UNK
  3. LIPITOR [Concomitant]
     Dosage: UNK

REACTIONS (1)
  - Emphysema [Unknown]
